FAERS Safety Report 8506042-9 (Version None)
Quarter: 2012Q3

REPORT INFORMATION
  Report Type: 
  Country: None (occurrence: None)
  Receive Date: 20120712
  Receipt Date: 20120710
  Transmission Date: 20120928
  Serious: Yes (Other)
  Sender: FDA-Public Use
  Company Number: US-ROCHE-1034517

PATIENT
  Sex: Male

DRUGS (2)
  1. ACCUTANE [Suspect]
     Indication: ACNE CYSTIC
     Route: 048
     Dates: start: 20050101
  2. PREDNISONE [Concomitant]

REACTIONS (6)
  - ANXIETY [None]
  - INFLAMMATORY BOWEL DISEASE [None]
  - LIP DRY [None]
  - DRY SKIN [None]
  - COLITIS ULCERATIVE [None]
  - DEPRESSION [None]
